FAERS Safety Report 14035793 (Version 1)
Quarter: 2017Q4

REPORT INFORMATION
  Report Type: Spontaneous
  Country: US (occurrence: US)
  Receive Date: 20171003
  Receipt Date: 20171003
  Transmission Date: 20180321
  Serious: No
  Sender: FDA-Public Use
  Company Number: US-AMGEN-USASP2017025825

PATIENT
  Age: 76 Year
  Sex: Female

DRUGS (1)
  1. XGEVA [Suspect]
     Active Substance: DENOSUMAB
     Indication: BONE CANCER
     Dosage: 120 MG, UNK
     Route: 065
     Dates: start: 20131101

REACTIONS (3)
  - Wrong technique in product usage process [Unknown]
  - Stomatitis [Not Recovered/Not Resolved]
  - Tooth disorder [Not Recovered/Not Resolved]
